FAERS Safety Report 8575041-3 (Version None)
Quarter: 2012Q3

REPORT INFORMATION
  Report Type: 
  Country: None (occurrence: None)
  Receive Date: 20120807
  Receipt Date: 20120711
  Transmission Date: 20120928
  Serious: No
  Sender: FDA-Public Use
  Company Number: US-BAUSCH-BL-2012-000112

PATIENT
  Age: 18 Year
  Sex: Female

DRUGS (2)
  1. LOTEPREDNOL ETABONATE OPHTHALMIC OINTMENT 0.5% [Suspect]
     Indication: RASH
     Dosage: 1 RIBBON TO RIGHT EYE LID ONCE DAILY AT BEDTIME
     Route: 047
     Dates: start: 20120501, end: 20120501
  2. LOTEPREDNOL ETABONATE OPHTHALMIC OINTMENT 0.5% [Suspect]
     Indication: OFF LABEL USE

REACTIONS (1)
  - RASH [None]
